FAERS Safety Report 5924944-4 (Version None)
Quarter: 2008Q4

REPORT INFORMATION
  Report Type: 
  Country: None (occurrence: None)
  Receive Date: 20081020
  Receipt Date: 20081020
  Transmission Date: 20090506
  Serious: Yes (Other)
  Sender: FDA-Public Use
  Company Number: None

PATIENT
  Age: 55 Year
  Sex: Female
  Weight: 87.0906 kg

DRUGS (1)
  1. LISINOPRIL AND HYDROCHLOROTHIAZIDE [Suspect]
     Indication: HYPERTENSION
     Dosage: 20/25MG 1 PDAY PO
     Route: 048
     Dates: start: 20081012, end: 20081016

REACTIONS (8)
  - ABDOMINAL PAIN UPPER [None]
  - BLOOD PRESSURE ABNORMAL [None]
  - DIZZINESS [None]
  - FALL [None]
  - FATIGUE [None]
  - FEAR [None]
  - HEART RATE INCREASED [None]
  - MUSCULAR WEAKNESS [None]
